FAERS Safety Report 8110324-2 (Version None)
Quarter: 2012Q1

REPORT INFORMATION
  Report Type: 
  Country: None (occurrence: None)
  Receive Date: 20120202
  Receipt Date: 20120118
  Transmission Date: 20120608
  Serious: Yes (Hospitalization)
  Sender: FDA-Public Use
  Company Number: JP-ROCHE-1002511

PATIENT
  Sex: Female
  Weight: 44 kg

DRUGS (18)
  1. LANSOPRAZOLE [Concomitant]
     Dates: start: 20090123
  2. REBAMIPIDE [Concomitant]
     Dates: start: 20070629
  3. INFLIXIMAB [Suspect]
     Indication: RHEUMATOID ARTHRITIS
     Dates: start: 20070805, end: 20080711
  4. FERROUS CITRATE [Concomitant]
     Dates: start: 20090123
  5. ECABET SODIUM [Concomitant]
     Dates: start: 20070629
  6. SULFAMETHOXAZOLE AND TRIMETHOPRIM [Concomitant]
     Dosage: 1 TABLET
     Dates: start: 20091216, end: 20111016
  7. ETANERCEPT [Suspect]
     Indication: RHEUMATOID ARTHRITIS
     Dates: start: 20070522, end: 20070808
  8. METHOTREXATE [Suspect]
     Indication: RHEUMATOID ARTHRITIS
     Dosage: 8 MG/WEEK
     Dates: start: 20080603, end: 20111004
  9. FOLIC ACID [Concomitant]
     Dates: start: 20080917, end: 20111004
  10. OCRELIZUMAB [Suspect]
     Indication: RHEUMATOID ARTHRITIS
     Route: 042
     Dates: start: 20081022
  11. ACTEMRA [Suspect]
     Indication: RHEUMATOID ARTHRITIS
     Dosage: 8 MG/KG/MONTH
     Dates: start: 20101202, end: 20110912
  12. MISOPROSTOL [Concomitant]
     Dates: start: 20090218
  13. PREDNISOLONE [Concomitant]
     Dates: start: 20080627
  14. BEPOTASTINE BESILATE [Concomitant]
     Dates: start: 20101202, end: 20110912
  15. ETANERCEPT [Suspect]
     Dates: start: 20101102, end: 20111124
  16. ADALIMUMAB [Suspect]
     Indication: RHEUMATOID ARTHRITIS
     Dates: start: 20100825, end: 20101006
  17. BUCILLAMINE [Suspect]
     Indication: RHEUMATOID ARTHRITIS
     Dates: start: 20070629, end: 20111004
  18. KETOPROFEN [Concomitant]
     Dates: start: 20071018

REACTIONS (1)
  - LARGE INTESTINE CARCINOMA [None]
